FAERS Safety Report 7404076-9 (Version None)
Quarter: 2011Q2

REPORT INFORMATION
  Report Type: 
  Country: None (occurrence: None)
  Receive Date: 20110408
  Receipt Date: 20110328
  Transmission Date: 20111010
  Serious: Yes (Death)
  Sender: FDA-Public Use
  Company Number: GB-GENENTECH-300432

PATIENT

DRUGS (3)
  1. RITUXIMAB [Suspect]
     Indication: CHRONIC LYMPHOCYTIC LEUKAEMIA
     Dosage: 375 MG/M2, UNK
     Route: 042
  2. LENALIDOMIDE [Suspect]
     Indication: CHRONIC LYMPHOCYTIC LEUKAEMIA
     Dosage: UNK
     Route: 048
  3. ALLOPURINOL [Suspect]
     Indication: PROPHYLAXIS
     Dosage: UNK
     Route: 065

REACTIONS (12)
  - THROMBOCYTOPENIA [None]
  - FEBRILE NEUTROPENIA [None]
  - PNEUMONIA [None]
  - INFECTIVE EXACERBATION OF CHRONIC OBSTRUCTIVE AIRWAYS DISEASE [None]
  - NEUTROPENIA [None]
  - FATIGUE [None]
  - TUMOUR FLARE [None]
  - ARTHRALGIA [None]
  - ISCHAEMIC STROKE [None]
  - INFECTION [None]
  - TUMOUR LYSIS SYNDROME [None]
  - UROSEPSIS [None]
